FAERS Safety Report 7417677-9 (Version None)
Quarter: 2011Q2

REPORT INFORMATION
  Report Type: 
  Country: None (occurrence: None)
  Receive Date: 20110412
  Receipt Date: 20110412
  Transmission Date: 20111010
  Serious: Yes (Other)
  Sender: FDA-Public Use
  Company Number: None

PATIENT

DRUGS (1)
  1. ACTONEL [Suspect]
     Indication: OSTEOPENIA
     Dosage: 1  1 PER MONTH BY MOUTH
     Route: 048
     Dates: start: 20110305

REACTIONS (3)
  - CHEST PAIN [None]
  - ARTHRALGIA [None]
  - BACK PAIN [None]
